FAERS Safety Report 6598176-3 (Version None)
Quarter: 2010Q1

REPORT INFORMATION
  Report Type: 
  Country: None (occurrence: None)
  Receive Date: 20100224
  Receipt Date: 20050223
  Transmission Date: 20100710
  Serious: No
  Sender: FDA-Public Use
  Company Number: US-ALLERGAN-200411517

PATIENT
  Age: 75 Year
  Sex: Female

DRUGS (7)
  1. BOTOX [Suspect]
     Indication: FACIAL SPASM
     Route: 030
     Dates: start: 19970901
  2. BOTOX [Suspect]
     Dosage: 17.5UNITS, PRN
     Route: 030
     Dates: start: 19970901
  3. BOTOX [Suspect]
     Dosage: 12.5UNITS, PRN
     Route: 030
     Dates: start: 19970901
  4. BOTOX [Suspect]
     Dosage: 13UNITS, PRN
     Route: 030
     Dates: start: 19970901
  5. BOTOX [Suspect]
     Dosage: 13UNITS, PRN
     Route: 030
     Dates: start: 19970901
  6. BOTOX [Suspect]
     Dosage: 13UNITS, PRN
     Route: 030
     Dates: start: 19970901
  7. ACCUPRIL [Concomitant]
     Indication: RENAL FAILURE
     Dosage: DOSE QUANTITY: 10, DOSE UNIT: MG
     Dates: start: 20000728

REACTIONS (1)
  - PSITTACOSIS [None]
